FAERS Safety Report 9732991 (Version 2)
Quarter: 2013Q4

REPORT INFORMATION
  Report Type: Spontaneous
  Country: US (occurrence: US)
  Receive Date: 20131205
  Receipt Date: 20131205
  Transmission Date: 20140711
  Serious: Yes (Hospitalization)
  Sender: FDA-Public Use
  Company Number: US-BMSGILMSD-2009-0021882

PATIENT
  Age: 40 Year
  Sex: Female

DRUGS (3)
  1. ATRIPLA [Suspect]
     Indication: HIV INFECTION
     Dates: start: 200904
  2. ATRIPLA [Suspect]
     Dates: start: 200805, end: 200903
  3. PRILOSEC [Concomitant]
     Route: 048

REACTIONS (1)
  - Pancreatitis acute [Recovered/Resolved]
